FAERS Safety Report 18759354 (Version 2)
Quarter: 2021Q1

REPORT INFORMATION
  Report Type: Report from Study
  Country: None (occurrence: TR)
  Receive Date: 20210120
  Receipt Date: 20210121
  Transmission Date: 20210419
  Serious: Yes (Hospitalization)
  Sender: FDA-Public Use
  Company Number: TR-ABBVIE-21K-161-3735910-00

PATIENT
  Age: 60 Year
  Sex: Female
  Weight: 70 kg

DRUGS (3)
  1. DUODOPA [Suspect]
     Active Substance: CARBIDOPA\LEVODOPA
     Indication: PARKINSON^S DISEASE
     Dosage: MORNING DOSE(ML): 6.50 CONTINUES DOSE(ML):1.40 EXTRA DOSE(ML):1.00
     Route: 050
     Dates: start: 20210113, end: 20210118
  2. DUODOPA [Suspect]
     Active Substance: CARBIDOPA\LEVODOPA
     Dosage: MORNING DOSE(ML): 6.00 CONTINUES DOSE(ML):1.20 EXTRA DOSE(ML):1.00
     Route: 050
     Dates: start: 20210119, end: 202101
  3. DUODOPA [Suspect]
     Active Substance: CARBIDOPA\LEVODOPA
     Dosage: MORNING DOSE(ML): 6.00 CONTINUES DOSE(ML):1.60 EXTRA DOSE(ML):1.00
     Route: 050
     Dates: start: 202101

REACTIONS (4)
  - Perforation [Recovered/Resolved]
  - Bradykinesia [Recovering/Resolving]
  - Abdominal distension [Recovered/Resolved]
  - Abdominal pain [Recovered/Resolved]

NARRATIVE: CASE EVENT DATE: 202101
